FAERS Safety Report 6521163-8 (Version None)
Quarter: 2009Q4

REPORT INFORMATION
  Report Type: 
  Country: None (occurrence: None)
  Receive Date: 20091222
  Receipt Date: 20091216
  Transmission Date: 20100525
  Serious: Yes (Death, Other)
  Sender: FDA-Public Use
  Company Number: 2009US004458

PATIENT
  Age: 53 Year
  Sex: Female

DRUGS (11)
  1. PROGRAF [Suspect]
     Indication: INTESTINAL TRANSPLANT
  2. PROGRAF [Suspect]
     Indication: LIVER TRANSPLANT
  3. PROGRAF [Suspect]
     Indication: PANCREAS TRANSPLANT
  4. PROGRAF [Suspect]
     Indication: RENAL TRANSPLANT
  5. CORTICOSTEROID NOS (CORTICOSTEROID NOS) [Suspect]
     Indication: GRAFT VERSUS HOST DISEASE
  6. BASILIXIMAB (BASILIXIMAB) [Suspect]
     Indication: GRAFT VERSUS HOST DISEASE
  7. RITUXIMAB (RITUXIMAB) [Suspect]
     Indication: GRAFT VERSUS HOST DISEASE
  8. MYCOPHENOLATE MOFETIL [Concomitant]
  9. TRIMETHOPRIM + SULFAMETHOXAZOLE [Concomitant]
  10. VALGANCICLOVIR HCL [Concomitant]
  11. DESIPRAMINE HCL [Concomitant]

REACTIONS (4)
  - CYTOMEGALOVIRUS TEST POSITIVE [None]
  - GRAFT VERSUS HOST DISEASE [None]
  - PANCYTOPENIA [None]
  - SEPSIS [None]
